FAERS Safety Report 11592678 (Version 3)
Quarter: 2021Q1

REPORT INFORMATION
  Report Type: Spontaneous
  Country: CA (occurrence: CA)
  Receive Date: 20151005
  Receipt Date: 20210205
  Transmission Date: 20210419
  Serious: Yes (Hospitalization)
  Sender: FDA-Public Use
  Company Number: CA-009507513-1510CAN000106

PATIENT
  Age: 85 Year
  Sex: Female

DRUGS (4)
  1. TIAZAC XC [Concomitant]
     Active Substance: DILTIAZEM HYDROCHLORIDE
     Dosage: 240 MILLIGRAM, QD
     Route: 048
  2. NITRO?DUR [Concomitant]
     Active Substance: NITROGLYCERIN
     Dosage: TRANSDERMAL PATCH ON LEFT ARM 7:00 PM TO 7:00 AM; Q12H
     Route: 062
  3. ELIQUIS [Concomitant]
     Active Substance: APIXABAN
     Dosage: 2.5 MILLIGRAM, BID
     Route: 048
  4. ELOCOM [Suspect]
     Active Substance: MOMETASONE FUROATE
     Indication: PRURITUS
     Dosage: 1 APPLICATION, QD
     Route: 061
     Dates: start: 20150723, end: 20150925

REACTIONS (5)
  - Abdominal discomfort [Unknown]
  - Cardiac discomfort [Unknown]
  - Paraesthesia [Unknown]
  - Electric shock [Unknown]
  - Chest pain [Recovering/Resolving]

NARRATIVE: CASE EVENT DATE: 20150830
